FAERS Safety Report 10647358 (Version 2)
Quarter: 2015Q1

REPORT INFORMATION
  Report Type: Spontaneous
  Country: US (occurrence: US)
  Receive Date: 20141211
  Receipt Date: 20150113
  Transmission Date: 20150720
  Serious: No
  Sender: FDA-Public Use
  Company Number: US-009507513-1412USA005892

PATIENT
  Sex: Female
  Weight: 61.22 kg

DRUGS (1)
  1. OXYTROL FOR WOMEN [Suspect]
     Active Substance: OXYBUTYNIN
     Indication: INCONTINENCE
     Dosage: 1 DF, Q4D
     Route: 062
     Dates: start: 20131114

REACTIONS (1)
  - Pruritus [Not Recovered/Not Resolved]
